FAERS Safety Report 20378660 (Version 1)
Quarter: 2022Q1

REPORT INFORMATION
  Report Type: Spontaneous
  Country: US (occurrence: None)
  Receive Date: 20220125
  Receipt Date: 20220125
  Transmission Date: 20220423
  Serious: Yes (Disabling)
  Sender: FDA-Public Use
  Company Number: None

PATIENT
  Weight: 102 kg

DRUGS (6)
  1. INJECTAFER [Suspect]
     Active Substance: FERRIC CARBOXYMALTOSE
     Indication: Anaemia
     Dosage: OTHER FREQUENCY : MONTHLY;?
     Route: 042
  2. MODERNA COVID-19 VACCINE [Suspect]
     Active Substance: ELASOMERAN
  3. ENTYVIO [Concomitant]
     Active Substance: VEDOLIZUMAB
  4. CYCLOBENZAPRINE [Concomitant]
     Active Substance: CYCLOBENZAPRINE
  5. VITAMIN D3 [Concomitant]
     Active Substance: CHOLECALCIFEROL
  6. ADVIL [Concomitant]
     Active Substance: IBUPROFEN

REACTIONS (2)
  - Back pain [None]
  - Injection related reaction [None]

NARRATIVE: CASE EVENT DATE: 20220125
